FAERS Safety Report 22098086 (Version 1)
Quarter: 2023Q1

REPORT INFORMATION
  Report Type: Report from Study
  Country: ES (occurrence: ES)
  Receive Date: 20230315
  Receipt Date: 20230315
  Transmission Date: 20230417
  Serious: Yes (Hospitalization, Other)
  Sender: FDA-Public Use
  Company Number: None

PATIENT
  Age: 69 Year
  Sex: Male
  Weight: 72 kg

DRUGS (13)
  1. CARBOPLATIN [Suspect]
     Active Substance: CARBOPLATIN
     Indication: Small cell lung cancer extensive stage
     Dates: start: 20220411
  2. ETOPOSIDE [Suspect]
     Active Substance: ETOPOSIDE
     Indication: Small cell lung cancer extensive stage
     Dates: start: 20220411
  3. ATEZOLIZUMAB [Suspect]
     Active Substance: ATEZOLIZUMAB
     Indication: Small cell lung cancer extensive stage
     Dosage: LAST DOSE OF ATEZOLIZUMAB ADMINISTERED
     Dates: start: 20220411
  4. OLMESARTAN MEDOXOMIL [Concomitant]
     Active Substance: OLMESARTAN MEDOXOMIL
  5. PREDNISONE [Concomitant]
     Active Substance: PREDNISONE
     Dates: start: 20221031, end: 20221229
  6. ABSTRAL [Concomitant]
     Active Substance: FENTANYL CITRATE
  7. ONDANSETRON [Concomitant]
     Active Substance: ONDANSETRON
     Indication: Premedication
     Dates: start: 20220411, end: 20220620
  8. OMEPRAZOLE [Concomitant]
     Active Substance: OMEPRAZOLE
     Dates: start: 20220408
  9. IVABRADINE [Concomitant]
     Active Substance: IVABRADINE
  10. FENTANYL [Concomitant]
     Active Substance: FENTANYL
  11. DEXAMETHASONE [Concomitant]
     Active Substance: DEXAMETHASONE
     Indication: Premedication
     Dates: start: 20220411, end: 20220622
  12. LORAZEPAM [Concomitant]
     Active Substance: LORAZEPAM
  13. ACETAMINOPHEN\TRAMADOL [Concomitant]
     Active Substance: ACETAMINOPHEN\TRAMADOL

REACTIONS (11)
  - Tachycardia [Recovered/Resolved]
  - Myalgia [Recovered/Resolved]
  - Mucosal inflammation [Recovered/Resolved]
  - Cyanosis [Not Recovered/Not Resolved]
  - Paraesthesia [Not Recovered/Not Resolved]
  - Infection [Recovered/Resolved]
  - Candida infection [Recovered/Resolved]
  - Febrile neutropenia [Recovered/Resolved]
  - Neutropenia [Recovered/Resolved]
  - Cough [Recovered/Resolved]
  - Diarrhoea [Recovered/Resolved]

NARRATIVE: CASE EVENT DATE: 20220425
